FAERS Safety Report 19506266 (Version 1)
Quarter: 2021Q3

REPORT INFORMATION
  Report Type: Spontaneous
  Country: US (occurrence: US)
  Receive Date: 20210708
  Receipt Date: 20210708
  Transmission Date: 20211014
  Serious: Yes (Other)
  Sender: FDA-Public Use
  Company Number: None

PATIENT
  Age: 66 Year
  Sex: Female
  Weight: 57.6 kg

DRUGS (11)
  1. MAGNESIUM [Concomitant]
     Active Substance: MAGNESIUM
  2. TUMERIC [Concomitant]
     Active Substance: HERBALS\TURMERIC
  3. HUMIRA [Suspect]
     Active Substance: ADALIMUMAB
     Indication: RHEUMATOID ARTHRITIS
     Dosage: ?          QUANTITY:1 PREFILLED SYRINGE;OTHER FREQUENCY:BIWEEKLY;?
     Route: 058
     Dates: start: 20200908, end: 20210707
  4. METHOTREXATE. [Concomitant]
     Active Substance: METHOTREXATE
  5. PRO BIOTICS [Concomitant]
  6. BIOTIN [Concomitant]
     Active Substance: BIOTIN
  7. FISH OIL [Concomitant]
     Active Substance: FISH OIL
  8. CALCIUM 500MG [Concomitant]
  9. FOLIC ACID. [Concomitant]
     Active Substance: FOLIC ACID
  10. ZINC. [Concomitant]
     Active Substance: ZINC
  11. VITAMINS:  C, D, B12 [Concomitant]

REACTIONS (6)
  - Pruritus [None]
  - Injection site swelling [None]
  - Injection site warmth [None]
  - Swelling [None]
  - Rash [None]
  - Erythema [None]

NARRATIVE: CASE EVENT DATE: 20210707
